FAERS Safety Report 5223811-1 (Version None)
Quarter: 2007Q1

REPORT INFORMATION
  Report Type: 
  Country: None (occurrence: None)
  Receive Date: 20070130
  Receipt Date: 20070116
  Transmission Date: 20070707
  Serious: Yes (Hospitalization)
  Sender: FDA-Public Use
  Company Number: PHRM2007FR00547

PATIENT
  Age: 75 Year
  Sex: Female

DRUGS (2)
  1. AREDIA [Suspect]
     Indication: MULTIPLE MYELOMA
     Dates: start: 20030926, end: 20040101
  2. ZOMETA [Suspect]
     Indication: MULTIPLE MYELOMA
     Dates: start: 20040501, end: 20050831

REACTIONS (12)
  - ABSCESS DRAINAGE [None]
  - BIOPSY [None]
  - BONE DISORDER [None]
  - CELLULITIS [None]
  - DENTAL CARE [None]
  - DEVICE THERAPY [None]
  - GINGIVITIS [None]
  - OSTEITIS [None]
  - PERIODONTAL DISEASE [None]
  - SURGERY [None]
  - SWELLING [None]
  - TOOTHACHE [None]
